FAERS Safety Report 9257139 (Version 1)
Quarter: 2013Q2

REPORT INFORMATION
  Report Type: Spontaneous
  Country: US (occurrence: None)
  Receive Date: 20130423
  Receipt Date: 20130423
  Transmission Date: 20140414
  Serious: Yes (Other)
  Sender: FDA-Public Use
  Company Number: 2013P1004685

PATIENT
  Age: 54 Year
  Sex: Female
  Weight: 65.77 kg

DRUGS (1)
  1. LAMOTRIGINE [Suspect]
     Indication: EPILEPSY
     Dates: start: 201201, end: 20130401

REACTIONS (6)
  - Sinusitis [None]
  - Irritability [None]
  - Feeling abnormal [None]
  - Clonus [None]
  - Drug ineffective [None]
  - Cough [None]
